FAERS Safety Report 4827026-8 (Version None)
Quarter: 2005Q4

REPORT INFORMATION
  Report Type: 
  Country: None (occurrence: None)
  Receive Date: 20051014
  Receipt Date: 20050705
  Transmission Date: 20060501
  Serious: No
  Sender: FDA-Public Use
  Company Number: 2005SP000629

PATIENT
  Age: 39 Year
  Sex: Female
  Weight: 58.9676 kg

DRUGS (3)
  1. LUNESTA [Suspect]
     Dosage: 1 MG; X1; ORAL, 2 MG; X1; ORAL, 3 MG; X1; ORAL
     Route: 048
     Dates: start: 20050505, end: 20050505
  2. LUNESTA [Suspect]
     Dosage: 1 MG; X1; ORAL, 2 MG; X1; ORAL, 3 MG; X1; ORAL
     Route: 048
     Dates: start: 20050506, end: 20050506
  3. LUNESTA [Suspect]
     Dosage: 1 MG; X1; ORAL, 2 MG; X1; ORAL, 3 MG; X1; ORAL
     Route: 048
     Dates: start: 20050507, end: 20050507

REACTIONS (2)
  - DRUG INEFFECTIVE [None]
  - INSOMNIA [None]
